FAERS Safety Report 18628207 (Version 3)
Quarter: 2021Q1

REPORT INFORMATION
  Report Type: Report from Study
  Country: IE (occurrence: IE)
  Receive Date: 20201217
  Receipt Date: 20210211
  Transmission Date: 20210419
  Serious: Yes (Other)
  Sender: FDA-Public Use
  Company Number: IE-SHIRE-IE202027135

PATIENT
  Age: 13 Year
  Sex: Male

DRUGS (15)
  1. PREDNISOLONE. [Concomitant]
     Active Substance: PREDNISOLONE
     Indication: PRODUCT USED FOR UNKNOWN INDICATION
     Dosage: 2 MILLIGRAM
     Route: 050
  2. CETIRIZINE HYDROCHLORIDE. [Concomitant]
     Active Substance: CETIRIZINE HYDROCHLORIDE
     Indication: PRODUCT USED FOR UNKNOWN INDICATION
     Dosage: 5 MILLIGRAM
     Route: 050
  3. RANITIDINE. [Concomitant]
     Active Substance: RANITIDINE
     Indication: PRODUCT USED FOR UNKNOWN INDICATION
     Dosage: 10 MILLILITER, 1/WEEK
     Route: 050
  4. IDURSULFASE [Suspect]
     Active Substance: IDURSULFASE
     Dosage: 30/24 MILLIGRAM, ON ALTERNATE WEEKS
     Route: 042
     Dates: start: 20200923
  5. IDURSULFASE [Suspect]
     Active Substance: IDURSULFASE
     Dosage: 30/24 MILLIGRAM, ON ALTERNATE WEEKS
     Route: 042
     Dates: start: 20120119
  6. ZIRTEK [Concomitant]
     Active Substance: CETIRIZINE HYDROCHLORIDE
     Indication: PRODUCT USED FOR UNKNOWN INDICATION
     Dosage: 5 MILLILITER
     Route: 050
  7. IDURSULFASE [Suspect]
     Active Substance: IDURSULFASE
     Indication: MUCOPOLYSACCHARIDOSIS II
     Dosage: 18 MG/24MG, ALTERNATE WEEKS
     Route: 050
     Dates: start: 20120119
  8. IDURSULFASE [Suspect]
     Active Substance: IDURSULFASE
     Dosage: 24/30 MILLIGRAM, ON ALTERNATE WEEKS
     Route: 042
     Dates: start: 20150427
  9. IDURSULFASE [Suspect]
     Active Substance: IDURSULFASE
     Dosage: 24/30 MILLIGRAM, ON ALTERNATE WEEKS
     Route: 042
     Dates: start: 20200812
  10. IDURSULFASE [Suspect]
     Active Substance: IDURSULFASE
     Dosage: 24/30 MILLIGRAM, ON ALTERNATE WEEKS
     Route: 042
     Dates: start: 20200819
  11. PARACETAMOL [Concomitant]
     Active Substance: ACETAMINOPHEN
     Indication: PRODUCT USED FOR UNKNOWN INDICATION
     Dosage: 15 MILLILITER
     Route: 050
  12. DIAZEPAM. [Concomitant]
     Active Substance: DIAZEPAM
     Dosage: 2.5 MILLIGRAM, QD
     Route: 050
  13. IDURSULFASE [Suspect]
     Active Substance: IDURSULFASE
     Dosage: 30/24 MILLIGRAM, ON ALTERNATE WEEKS
     Route: 042
     Dates: start: 20200923
  14. RANITIDINE. [Concomitant]
     Active Substance: RANITIDINE
     Dosage: 5 MILLILITER
     Route: 050
  15. VOLTAROL [Concomitant]
     Active Substance: DICLOFENAC SODIUM
     Indication: PRODUCT USED FOR UNKNOWN INDICATION
     Dosage: 25 MILLIGRAM, BID
     Route: 050

REACTIONS (6)
  - Nail operation [Recovering/Resolving]
  - Vomiting [Unknown]
  - Hearing aid user [Unknown]
  - Dyspepsia [Unknown]
  - Inappropriate schedule of product administration [Recovered/Resolved]
  - Choking [Unknown]

NARRATIVE: CASE EVENT DATE: 20200929
